FAERS Safety Report 5597115-1 (Version None)
Quarter: 2008Q1

REPORT INFORMATION
  Report Type: 
  Country: None (occurrence: None)
  Receive Date: 20080121
  Receipt Date: 20080109
  Transmission Date: 20080703
  Serious: Yes (Other)
  Sender: FDA-Public Use
  Company Number: PHHY2008BR00620

PATIENT
  Age: 65 Year
  Sex: Male
  Weight: 73 kg

DRUGS (2)
  1. GALVUS MET [Suspect]
     Dosage: 100/850 MG
     Dates: start: 20071113
  2. GALVUS MET [Suspect]
     Dosage: 100 MG VILDAGLIPTIN, HALF-DOSE OF METFORMIN
     Dates: start: 20071128, end: 20071130

REACTIONS (4)
  - ABDOMINAL PAIN [None]
  - DIABETES MELLITUS INADEQUATE CONTROL [None]
  - DIARRHOEA [None]
  - WEIGHT DECREASED [None]
